FAERS Safety Report 7217767-X (Version None)
Quarter: 2011Q1

REPORT INFORMATION
  Report Type: 
  Country: None (occurrence: None)
  Receive Date: 20110110
  Receipt Date: 20101228
  Transmission Date: 20110831
  Serious: Yes (Other)
  Sender: FDA-Public Use
  Company Number: PHHY2010FR89894

PATIENT
  Sex: Female

DRUGS (1)
  1. PARLODEL [Suspect]
     Indication: LACTATION INHIBITION THERAPY
     Dosage: UNK
     Dates: start: 20101201, end: 20101202

REACTIONS (6)
  - HEMIANOPIA HOMONYMOUS [None]
  - TRANSIENT ISCHAEMIC ATTACK [None]
  - SPEECH DISORDER [None]
  - FACIAL PARESIS [None]
  - BLOOD PRESSURE INCREASED [None]
  - CEREBROVASCULAR SPASM [None]
